FAERS Safety Report 13666418 (Version 1)
Quarter: 2017Q2

REPORT INFORMATION
  Report Type: Spontaneous
  Country: US (occurrence: US)
  Receive Date: 20170619
  Receipt Date: 20170619
  Transmission Date: 20170830
  Serious: No
  Sender: FDA-Public Use
  Company Number: US-ROCHE-1347493

PATIENT
  Sex: Female

DRUGS (2)
  1. XELODA [Suspect]
     Active Substance: CAPECITABINE
     Indication: COLON CANCER
     Dosage: 2 BID 14 DAYS ON 7 OFF
     Route: 048
     Dates: start: 20130212
  2. XELODA [Suspect]
     Active Substance: CAPECITABINE
     Dosage: 2 TABS BID, 14 DAYS ON, 14 DAYS OFF
     Route: 048
     Dates: start: 20140214

REACTIONS (4)
  - White blood cell count decreased [Unknown]
  - Herpes zoster [Unknown]
  - Diarrhoea [Unknown]
  - Skin fissures [Unknown]
